FAERS Safety Report 13358191 (Version 1)
Quarter: 2017Q1

REPORT INFORMATION
  Report Type: Spontaneous
  Country: US (occurrence: US)
  Receive Date: 20170322
  Receipt Date: 20170322
  Transmission Date: 20170429
  Serious: No
  Sender: FDA-Public Use
  Company Number: US-AUROBINDO-AUR-APU-2016-15508

PATIENT
  Sex: Male
  Weight: 86.17 kg

DRUGS (2)
  1. OXYCODONE [Concomitant]
     Active Substance: OXYCODONE
     Indication: BREAKTHROUGH PAIN
     Dosage: UNK
  2. METHADONE HYDROCHLORIDE TABLET USP 10MG [Suspect]
     Active Substance: METHADONE HYDROCHLORIDE
     Indication: PAIN MANAGEMENT
     Dosage: 10 MG, UNK
     Dates: start: 20161106

REACTIONS (2)
  - Abdominal pain upper [Not Recovered/Not Resolved]
  - Product substitution issue [Not Recovered/Not Resolved]
